FAERS Safety Report 9590334 (Version 2)
Quarter: 2013Q4

REPORT INFORMATION
  Report Type: Spontaneous
  Country: US (occurrence: US)
  Receive Date: 20131003
  Receipt Date: 20131003
  Transmission Date: 20140711
  Serious: No
  Sender: FDA-Public Use
  Company Number: US-AMGEN-USASP2012075790

PATIENT
  Age: 57 Year
  Sex: Female

DRUGS (1)
  1. ENBREL [Suspect]
     Indication: PSORIASIS
     Dosage: 50 MG, Q2WK
     Dates: start: 20121116

REACTIONS (15)
  - Dizziness [Recovered/Resolved]
  - Sinus headache [Recovered/Resolved]
  - Dry eye [Recovered/Resolved]
  - Vision blurred [Recovered/Resolved]
  - Blood glucose increased [Unknown]
  - Burning sensation [Unknown]
  - Pain in extremity [Unknown]
  - Visual impairment [Unknown]
  - Eye pruritus [Unknown]
  - Eye irritation [Unknown]
  - Somnolence [Unknown]
  - Headache [Unknown]
  - Eye disorder [Unknown]
  - Musculoskeletal pain [Unknown]
  - Drug ineffective [Not Recovered/Not Resolved]
